FAERS Safety Report 15733502 (Version 1)
Quarter: 2018Q4

REPORT INFORMATION
  Report Type: Spontaneous
  Country: SI (occurrence: SI)
  Receive Date: 20181218
  Receipt Date: 20181218
  Transmission Date: 20190205
  Serious: Yes (Hospitalization)
  Sender: FDA-Public Use
  Company Number: SI-ROCHE-2228258

PATIENT
  Age: 57 Year
  Sex: Female

DRUGS (4)
  1. PERJETA [Suspect]
     Active Substance: PERTUZUMAB
     Indication: BREAST CANCER
     Dosage: 420 MG CONCENTRATE FOR SOLUTION FOR INFUSION
     Route: 042
     Dates: start: 20181123, end: 20181123
  2. TRASTUZUMAB. [Concomitant]
     Active Substance: TRASTUZUMAB
     Route: 065
  3. PACLITAXEL. [Concomitant]
     Active Substance: PACLITAXEL
     Route: 065
  4. EUTHYROX [Concomitant]
     Active Substance: LEVOTHYROXINE SODIUM
     Route: 065

REACTIONS (3)
  - Oxygen saturation decreased [Recovered/Resolved]
  - Tremor [Recovered/Resolved]
  - Dyspnoea [Recovered/Resolved]

NARRATIVE: CASE EVENT DATE: 20181123
